FAERS Safety Report 8394394-2 (Version None)
Quarter: 2012Q2

REPORT INFORMATION
  Report Type: 
  Country: None (occurrence: None)
  Receive Date: 20120530
  Receipt Date: 20120522
  Transmission Date: 20120825
  Serious: Yes (Other)
  Sender: FDA-Public Use
  Company Number: PHHY2012DE033755

PATIENT
  Sex: Female
  Weight: 53 kg

DRUGS (3)
  1. CALCIUM W/COLECALCIFEROL [Concomitant]
     Dosage: UNK UKN, UNK
  2. LORATADINE [Concomitant]
     Dosage: 10 MG, DAILY
     Route: 048
  3. GILENYA [Suspect]
     Indication: MULTIPLE SCLEROSIS
     Dosage: 0.5 MG, QD
     Route: 048
     Dates: start: 20120320

REACTIONS (10)
  - MYOCARDIAL ISCHAEMIA [None]
  - MYALGIA [None]
  - ALANINE AMINOTRANSFERASE INCREASED [None]
  - ELECTROCARDIOGRAM T WAVE INVERSION [None]
  - NAUSEA [None]
  - PARESIS [None]
  - LYMPHOCYTE COUNT DECREASED [None]
  - ASPARTATE AMINOTRANSFERASE INCREASED [None]
  - DIZZINESS [None]
  - ELECTROCARDIOGRAM ST SEGMENT DEPRESSION [None]
